FAERS Safety Report 5385089-8 (Version None)
Quarter: 2007Q3

REPORT INFORMATION
  Report Type: 
  Country: None (occurrence: None)
  Receive Date: 20070709
  Receipt Date: 20070622
  Transmission Date: 20080115
  Serious: Yes (Life-Threatening)
  Sender: FDA-Public Use
  Company Number: 8025037

PATIENT
  Age: 42 Year
  Sex: Female

DRUGS (1)
  1. XYZAL [Suspect]
     Dosage: 5 MG ONCE PO
     Route: 048
     Dates: start: 20070323, end: 20070323

REACTIONS (1)
  - TACHYCARDIA [None]
